FAERS Safety Report 16363094 (Version 1)
Quarter: 2019Q2

REPORT INFORMATION
  Report Type: Spontaneous
  Country: FR (occurrence: FR)
  Receive Date: 20190528
  Receipt Date: 20190528
  Transmission Date: 20190711
  Serious: Yes (Life-Threatening, Hospitalization, Other)
  Sender: FDA-Public Use
  Company Number: FR-JNJFOC-20190504992

PATIENT
  Age: 29 Year
  Sex: Female
  Weight: 65 kg

DRUGS (1)
  1. TOPALGIC (TRAMADOL HYDROCHLORIDE) [Suspect]
     Active Substance: TRAMADOL HYDROCHLORIDE
     Indication: PRODUCT USED FOR UNKNOWN INDICATION
     Route: 065
     Dates: start: 2013

REACTIONS (15)
  - Decreased appetite [Unknown]
  - Hepatic failure [Unknown]
  - Drug-induced liver injury [Unknown]
  - Abdominal pain [Unknown]
  - Drug dependence [Not Recovered/Not Resolved]
  - Renal failure [Unknown]
  - Vitamin B12 increased [Unknown]
  - Weight decreased [Unknown]
  - Leukopenia [Unknown]
  - Asthenia [Unknown]
  - Vomiting [Unknown]
  - Gamma-glutamyltransferase increased [Unknown]
  - Anaemia macrocytic [Unknown]
  - Full blood count abnormal [Unknown]
  - Macrocytosis [Unknown]

NARRATIVE: CASE EVENT DATE: 2013
